FAERS Safety Report 6094674-X (Version None)
Quarter: 2009Q1

REPORT INFORMATION
  Report Type: 
  Country: None (occurrence: None)
  Receive Date: 20090224
  Receipt Date: 20090209
  Transmission Date: 20090719
  Serious: Yes (Other)
  Sender: FDA-Public Use
  Company Number: JHP200900041

PATIENT
  Age: 46 Year
  Sex: Male

DRUGS (3)
  1. COLY-MYCIN M PARENTERAL (COLISTIN) INJECTION, 150MG [Suspect]
     Indication: LUNG INFECTION PSEUDOMONAL
     Dosage: 125 MG EVERY 6 HOURS (6 MG/KG/DAY), INTRAVENOUS; 150 MG BID, INHALATION
  2. COLY-MYCIN M PARENTERAL (COLISTIN) INJECTION, 150MG [Suspect]
     Indication: LUNG INFECTION PSEUDOMONAL
     Dosage: 125 MG EVERY 6 HOURS (6 MG/KG/DAY), INTRAVENOUS; 150 MG BID, INHALATION
  3. ANTIBIOTICS () [Suspect]
     Indication: LUNG INFECTION PSEUDOMONAL

REACTIONS (4)
  - BLOOD CREATININE INCREASED [None]
  - NEPHROPATHY TOXIC [None]
  - NEUROTOXICITY [None]
  - OFF LABEL USE [None]
